FAERS Safety Report 7924698-6 (Version None)
Quarter: 2011Q4

REPORT INFORMATION
  Report Type: 
  Country: None (occurrence: None)
  Receive Date: 20111118
  Receipt Date: 20110325
  Transmission Date: 20120403
  Serious: No
  Sender: FDA-Public Use
  Company Number: US-AMGEN-USASP2011016252

PATIENT
  Age: 52 Year
  Weight: 111.57 kg

DRUGS (18)
  1. CYMBALTA [Concomitant]
     Dosage: 20 MG, UNK
  2. METHOTREXATE [Concomitant]
     Dosage: 2.5 MG, UNK
  3. HYDROCHLOROTHIAZIDE [Concomitant]
     Dosage: 12.5 MG, UNK
  4. VITAMIN D [Concomitant]
     Dosage: 1000 IU, UNK
  5. NORVASC [Concomitant]
     Dosage: 5 MG, UNK
  6. SYNTHROID [Concomitant]
     Dosage: 0.100 MG, UNK
  7. FOLIC ACID [Concomitant]
     Dosage: 0.400 MG, UNK
  8. VITAMIN C                          /00008001/ [Concomitant]
     Dosage: 500 MG, UNK
  9. OMEGA 3                            /00931501/ [Concomitant]
     Dosage: 1000 MG, UNK
  10. PROPRANOLOL [Concomitant]
     Dosage: 10 MG, UNK
  11. ESTRADIOL [Concomitant]
     Dosage: 0.1 MG, UNK
  12. NO FLUSH NIACIN [Concomitant]
     Dosage: 400 MG, UNK
  13. ZOCOR [Concomitant]
     Dosage: 10 MG, UNK
  14. AMBIEN [Concomitant]
     Dosage: 5 MG, UNK
  15. ENBREL [Suspect]
     Indication: PRODUCT USED FOR UNKNOWN INDICATION
     Dosage: 50 MG, QWK
  16. CEPHALEXIN [Concomitant]
     Dosage: 250 MG, UNK
  17. ETODOLAC [Concomitant]
     Dosage: 200 MG, UNK
  18. MULTI-VITAMINS [Concomitant]

REACTIONS (1)
  - EYE INFECTION [None]
